FAERS Safety Report 4596751-9 (Version None)
Quarter: 2005Q1

REPORT INFORMATION
  Report Type: 
  Country: None (occurrence: None)
  Receive Date: 20050228
  Receipt Date: 20040615
  Transmission Date: 20050727
  Serious: Yes (Hospitalization, Disabling)
  Sender: FDA-Public Use
  Company Number: 8210

PATIENT
  Age: 70 Year
  Sex: Female

DRUGS (8)
  1. METHOTREXATE [Suspect]
     Indication: RHEUMATOID ARTHRITIS
     Dosage: 25 MG TOTAL
  2. LEVOTHYROXINE [Concomitant]
  3. NIFEDIPINE [Concomitant]
  4. TICLODIPINE [Concomitant]
  5. FERROUS SULFATEND FOLIC ACID [Concomitant]
  6. METHYLPREDNISOLONE [Concomitant]
  7. CALCIUM GLUCONATE [Concomitant]
  8. CALCITRIOL [Concomitant]

REACTIONS (5)
  - DIARRHOEA [None]
  - PANCYTOPENIA [None]
  - PARKINSONISM [None]
  - RENAL FAILURE ACUTE [None]
  - STOMATITIS [None]
